FAERS Safety Report 15518879 (Version 2)
Quarter: 2019Q3

REPORT INFORMATION
  Report Type: Spontaneous
  Country: US (occurrence: US)
  Receive Date: 20181017
  Receipt Date: 20190911
  Transmission Date: 20191004
  Serious: Yes (Other)
  Sender: FDA-Public Use
  Company Number: US-ELI_LILLY_AND_COMPANY-US201810005693

PATIENT
  Sex: Male

DRUGS (8)
  1. VIAGRA [Suspect]
     Active Substance: SILDENAFIL CITRATE
     Indication: ERECTILE DYSFUNCTION
     Dosage: 50 MG, WEEKLY (1/W)
     Route: 048
     Dates: start: 200503, end: 200506
  2. CIALIS [Suspect]
     Active Substance: TADALAFIL
     Indication: ERECTILE DYSFUNCTION
     Dosage: 20 MG, 3/W
     Route: 048
     Dates: start: 20101215, end: 2013
  3. CIALIS [Suspect]
     Active Substance: TADALAFIL
     Dosage: 1 DOSAGE FORM, UNKNOWN
     Route: 048
     Dates: start: 201011, end: 201101
  4. ENBREL [Concomitant]
     Active Substance: ETANERCEPT
     Indication: PSORIASIS
     Dosage: 50 MG, WEEKLY (1/W)
     Route: 065
  5. VIAGRA [Suspect]
     Active Substance: SILDENAFIL CITRATE
     Dosage: 50 MG, 2/W, PRN
     Route: 048
     Dates: start: 201205, end: 201604
  6. VIAGRA [Suspect]
     Active Substance: SILDENAFIL CITRATE
     Dosage: UNK UNK, UNKNOWN
     Route: 048
     Dates: start: 201011, end: 201101
  7. LEVITRA [Concomitant]
     Active Substance: VARDENAFIL HYDROCHLORIDE
     Indication: ERECTILE DYSFUNCTION
     Dosage: UNK UNK, UNKNOWN
     Route: 065
     Dates: start: 201011, end: 201101
  8. LEVITRA [Concomitant]
     Active Substance: VARDENAFIL HYDROCHLORIDE
     Dosage: 20 MG, 3/W
     Route: 065
     Dates: start: 20110204, end: 20120530

REACTIONS (4)
  - Malignant melanoma stage I [Unknown]
  - Facial paralysis [Recovered/Resolved]
  - Glaucoma [Not Recovered/Not Resolved]
  - Malignant melanoma in situ [Unknown]

NARRATIVE: CASE EVENT DATE: 20121211
